FAERS Safety Report 8771779 (Version 2)
Quarter: 2012Q4

REPORT INFORMATION
  Report Type: 
  Country: US (occurrence: US)
  Receive Date: 20120830
  Receipt Date: 20121009
  Transmission Date: 20130627
  Serious: Yes (Hospitalization, Other)
  Sender: FDA-Public Use
  Company Number: US-ELI_LILLY_AND_COMPANY-US201208009055

PATIENT
  Age: 61 Year
  Sex: Female

DRUGS (8)
  1. FORTEO [Suspect]
     Indication: OSTEOPOROSIS
     Dosage: 20 u, qd
     Dates: start: 2008
  2. FORTEO [Suspect]
     Dosage: 20 u, qd
     Dates: start: 2008
  3. FORTEO [Suspect]
     Dosage: 20 ug, qd
  4. PLAQUENIL [Concomitant]
     Dosage: UNK
  5. CELLSEPT [Concomitant]
     Dosage: UNK
  6. PREDNISONE [Concomitant]
     Dosage: 60 mg, qd
  7. VITAMINS [Concomitant]
     Dosage: UNK, unknown
  8. CALCIUM CARBONATE [Concomitant]
     Dosage: UNK, unknown

REACTIONS (8)
  - Systemic lupus erythematosus [Not Recovered/Not Resolved]
  - Pneumothorax [Unknown]
  - Vomiting [Unknown]
  - Dehydration [Unknown]
  - Hospitalisation [Unknown]
  - Osteoporosis [Unknown]
  - Lung disorder [Unknown]
  - Drug dose omission [Unknown]
